FAERS Safety Report 25370902 (Version 2)
Quarter: 2025Q3

REPORT INFORMATION
  Report Type: Report from Study
  Country: ZA (occurrence: ZA)
  Receive Date: 20250528
  Receipt Date: 20250802
  Transmission Date: 20251020
  Serious: Yes (Death)
  Sender: ALEXION PHARMACEUTICALS
  Company Number: ZA-AstraZeneca-CH-00877527A

PATIENT
  Age: 75 Year
  Sex: Female

DRUGS (7)
  1. DAPAGLIFLOZIN [Suspect]
     Active Substance: DAPAGLIFLOZIN
     Indication: Diabetes mellitus
     Route: 065
  2. Co irbewin [Concomitant]
     Indication: Hypertension
     Route: 065
  3. ESOMEPRAZOLE MAGNESIUM [Concomitant]
     Active Substance: ESOMEPRAZOLE MAGNESIUM
     Indication: Ulcer
     Route: 065
  4. ATORVASTATIN [Concomitant]
     Active Substance: ATORVASTATIN
     Indication: Blood cholesterol
     Route: 065
  5. LYRICA [Concomitant]
     Active Substance: PREGABALIN
     Indication: Epilepsy
     Route: 065
  6. Stilpane [Concomitant]
     Indication: Pain
  7. INFLUVAC [Concomitant]
     Active Substance: INFLUENZA VIRUS VACCINE TRIVALENT TYPE A+B

REACTIONS (1)
  - Death [Fatal]
